FAERS Safety Report 26098632 (Version 1)
Quarter: 2025Q4

REPORT INFORMATION
  Report Type: Spontaneous
  Country: EU (occurrence: None)
  Receive Date: 20251127
  Receipt Date: 20251127
  Transmission Date: 20260117
  Serious: Yes (Hospitalization)
  Sender: ORGANON
  Company Number: None

PATIENT
  Age: 37 Year
  Sex: Female
  Weight: 96 kg

DRUGS (2)
  1. NEXPLANON [Suspect]
     Active Substance: ETONOGESTREL
     Indication: Contraception
     Dosage: 1 IMPLANT, 68 MG
     Dates: start: 20230209, end: 20250826
  2. Eletriptan / Relpax tab 40 mg [Concomitant]
     Indication: Migraine
     Dosage: 40 MG X8-14/ MONTH

REACTIONS (2)
  - Abdominal pain [Recovered/Resolved with Sequelae]
  - Hypoaesthesia [Recovering/Resolving]

NARRATIVE: CASE EVENT DATE: 20240915
